FAERS Safety Report 24533689 (Version 2)
Quarter: 2025Q2

REPORT INFORMATION
  Report Type: Report from Study
  Country: CA (occurrence: CA)
  Receive Date: 20241022
  Receipt Date: 20250417
  Transmission Date: 20250717
  Serious: Yes (Hospitalization, Other)
  Sender: JOHNSON AND JOHNSON
  Company Number: CA-JNJFOC-20241044778

PATIENT
  Age: 55 Year
  Sex: Female

DRUGS (1)
  1. REMICADE [Suspect]
     Active Substance: INFLIXIMAB
     Indication: Crohn^s disease
     Route: 041

REACTIONS (7)
  - Sepsis [Recovering/Resolving]
  - Clostridium difficile infection [Recovering/Resolving]
  - Pneumonia [Recovering/Resolving]
  - Cystitis [Recovering/Resolving]
  - COVID-19 [Recovering/Resolving]
  - Coma [Recovering/Resolving]
  - Cerebrovascular accident [Recovering/Resolving]

NARRATIVE: CASE EVENT DATE: 20230701
